FAERS Safety Report 4348800-0 (Version None)
Quarter: 2004Q1

REPORT INFORMATION
  Report Type: 
  Country: None (occurrence: None)
  Receive Date: 20040325
  Receipt Date: 20040217
  Transmission Date: 20041129
  Serious: No
  Sender: FDA-Public Use
  Company Number: USA040259589

PATIENT
  Age: 75 Year
  Sex: Female

DRUGS (4)
  1. FORTEO [Suspect]
     Indication: OSTEOPOROSIS
     Dates: start: 20031201, end: 20040217
  2. URSODIOL [Concomitant]
  3. SYNTHROID [Concomitant]
  4. TRIAMTERENE [Concomitant]

REACTIONS (2)
  - ABDOMINAL PAIN [None]
  - ASTHENIA [None]
